FAERS Safety Report 5144222-3 (Version None)
Quarter: 2006Q4

REPORT INFORMATION
  Report Type: 
  Country: None (occurrence: None)
  Receive Date: 20061106
  Receipt Date: 20061025
  Transmission Date: 20070319
  Serious: Yes (Other)
  Sender: FDA-Public Use
  Company Number: GB-ROCHE-468693

PATIENT
  Age: 46 Year
  Sex: Male

DRUGS (7)
  1. VALGANCICLOVIR HCL [Suspect]
     Route: 048
  2. GANCICLOVIR [Suspect]
     Dosage: TAKEN INTERMITTENTLY
     Route: 042
  3. GANCICLOVIR [Suspect]
     Dosage: TAKEN INTERMITTENTLY
     Route: 048
  4. MMF [Concomitant]
  5. TACROLIMUS [Concomitant]
  6. FOSCARNET [Concomitant]
  7. ANTI-CMV IMMUNOGLOBULIN [Concomitant]

REACTIONS (1)
  - NEUTROPHIL MORPHOLOGY ABNORMAL [None]
